FAERS Safety Report 4721209-3 (Version None)
Quarter: 2005Q3

REPORT INFORMATION
  Report Type: 
  Country: None (occurrence: None)
  Receive Date: 20050722
  Receipt Date: 20050621
  Transmission Date: 20060218
  Serious: Yes (Hospitalization, Disabling)
  Sender: FDA-Public Use
  Company Number: US-KINGPHARMUSA00001-K200500871

PATIENT
  Age: 23 Year
  Sex: Male
  Weight: 56 kg

DRUGS (4)
  1. SEPTRA [Suspect]
     Indication: INFECTION PROPHYLAXIS
     Dosage: 960 MG, THREE TIMES/WEEK
     Route: 048
  2. EFAVIRENZ [Concomitant]
     Indication: SYSTEMIC ANTIVIRAL TREATMENT
     Dates: start: 20050620, end: 20050620
  3. ABACAVIR [Suspect]
     Indication: SYSTEMIC ANTIVIRAL TREATMENT
     Route: 048
     Dates: start: 20050620, end: 20050620
  4. LAMIVUDINE [Suspect]
     Indication: SYSTEMIC ANTIVIRAL TREATMENT
     Route: 048
     Dates: start: 20050620, end: 20050620

REACTIONS (12)
  - ABDOMINAL PAIN UPPER [None]
  - CONJUNCTIVITIS [None]
  - DIARRHOEA [None]
  - DIZZINESS [None]
  - HYPOTENSION [None]
  - MALAISE [None]
  - MUCOUS MEMBRANE DISORDER [None]
  - NAUSEA [None]
  - PYREXIA [None]
  - RASH MACULAR [None]
  - SWELLING FACE [None]
  - SYNCOPE [None]
